FAERS Safety Report 6714504-X (Version None)
Quarter: 2010Q2

REPORT INFORMATION
  Report Type: 
  Country: None (occurrence: None)
  Receive Date: 20100506
  Receipt Date: 20100427
  Transmission Date: 20101027
  Serious: Yes (Other)
  Sender: FDA-Public Use
  Company Number: JP-WATSON-2010-05787

PATIENT
  Age: 42 Year
  Sex: Female

DRUGS (2)
  1. CYCLOSPORINE [Suspect]
     Indication: PROPHYLAXIS AGAINST TRANSPLANT REJECTION
     Dosage: 3 MG/KG, DAILY
  2. PREDNISOLONE ACETATE (WATSON LABORATORIES) [Suspect]
     Indication: GRAFT VERSUS HOST DISEASE
     Dosage: 0.5 MG/KG, DAILY

REACTIONS (1)
  - INTRACRANIAL VENOUS SINUS THROMBOSIS [None]
